FAERS Safety Report 9712716 (Version 2)
Quarter: 2013Q4

REPORT INFORMATION
  Report Type: Spontaneous
  Country: US (occurrence: US)
  Receive Date: 20131126
  Receipt Date: 20131126
  Transmission Date: 20140711
  Serious: No
  Sender: FDA-Public Use
  Company Number: US-BRISTOL-MYERS SQUIBB COMPANY-18910869

PATIENT
  Age: 47 Year
  Sex: Male
  Weight: 104.31 kg

DRUGS (2)
  1. BYDUREON [Suspect]
     Indication: TYPE 2 DIABETES MELLITUS
     Dosage: DURATION OF THERAPY: 4 WKS
     Route: 058
     Dates: start: 201304, end: 201305
  2. METFORMIN [Concomitant]

REACTIONS (3)
  - Injection site cellulitis [Recovered/Resolved]
  - Pruritus [Not Recovered/Not Resolved]
  - Injection site nodule [Not Recovered/Not Resolved]
